FAERS Safety Report 9715750 (Version 1)
Quarter: 2013Q4

REPORT INFORMATION
  Report Type: Spontaneous
  Country: US (occurrence: US)
  Receive Date: 20131127
  Receipt Date: 20131127
  Transmission Date: 20140711
  Serious: No
  Sender: FDA-Public Use
  Company Number: US-BAYER-2013-145114

PATIENT
  Age: 34 Year
  Sex: Male

DRUGS (1)
  1. MAGNEVIST [Suspect]
     Indication: NUCLEAR MAGNETIC RESONANCE IMAGING
     Dosage: 20 ML, ONCE
     Dates: start: 20131121, end: 20131121

REACTIONS (4)
  - Eye swelling [None]
  - Sneezing [None]
  - Eye pruritus [None]
  - Ocular hyperaemia [None]
